FAERS Safety Report 16050524 (Version 1)
Quarter: 2019Q1

REPORT INFORMATION
  Report Type: Spontaneous
  Country: US (occurrence: US)
  Receive Date: 20190308
  Receipt Date: 20190308
  Transmission Date: 20190418
  Serious: Yes (Death, Other)
  Sender: FDA-Public Use
  Company Number: US-009507513-1903USA002288

PATIENT
  Age: 49 Year
  Sex: Female

DRUGS (7)
  1. DIPHENHYDRAMINE. [Suspect]
     Active Substance: DIPHENHYDRAMINE
     Dosage: CAUSE RANK: 5
     Route: 048
  2. VERAPAMIL [Suspect]
     Active Substance: VERAPAMIL HYDROCHLORIDE
     Dosage: CAUSE RANK: 2; VERAPAMIL CONCENTRATION IN BLOOD 2.3 MCG/ML (1 H, PERIPHERAL BLOOD (PE))
     Route: 048
  3. PRINIVIL [Suspect]
     Active Substance: LISINOPRIL
     Dosage: CAUSE RANK: 7
     Route: 048
  4. ALCOHOL. [Suspect]
     Active Substance: ALCOHOL
     Dosage: CAUSE RANK: 4
     Route: 048
  5. ESCITALOPRAM [Suspect]
     Active Substance: ESCITALOPRAM OXALATE
     Dosage: CAUSE RANK: 3
     Route: 048
  6. HYDROCHLOROTHIAZIDE. [Suspect]
     Active Substance: HYDROCHLOROTHIAZIDE
     Dosage: CAUSE RANK: 6
     Route: 048
  7. BUPROPION. [Suspect]
     Active Substance: BUPROPION
     Dosage: CAUSE RANK: 1; BUPROPION CONCENTRATION IN BLOOD 12.2 MCG/ML (AUTOPSY)
     Route: 048

REACTIONS (1)
  - Suspected suicide attempt [Fatal]
